FAERS Safety Report 5799873-X (Version None)
Quarter: 2008Q3

REPORT INFORMATION
  Report Type: 
  Country: None (occurrence: None)
  Receive Date: 20080703
  Receipt Date: 20080626
  Transmission Date: 20090109
  Serious: Yes (Death, Congenital Anomaly, Other)
  Sender: FDA-Public Use
  Company Number: IL-ABBOTT-08P-082-0460167-00

PATIENT
  Age: 1 Day
  Sex: Female
  Weight: 2.8 kg

DRUGS (1)
  1. VALPROATE SODIUM [Suspect]
     Indication: DRUG EXPOSURE DURING PREGNANCY
     Route: 064

REACTIONS (6)
  - CEREBRAL CALCIFICATION [None]
  - CONGENITAL BRAIN DAMAGE [None]
  - CONGENITAL CEREBRAL CYST [None]
  - DRUG EXPOSURE DURING PREGNANCY [None]
  - ELECTROENCEPHALOGRAM ABNORMAL [None]
  - MYOCLONIC EPILEPSY [None]
